FAERS Safety Report 9054954 (Version 1)
Quarter: 2013Q1

REPORT INFORMATION
  Report Type: Spontaneous
  Country: US (occurrence: US)
  Receive Date: 20130208
  Receipt Date: 20130208
  Transmission Date: 20140127
  Serious: Yes (Hospitalization)
  Sender: FDA-Public Use
  Company Number: US-BAYER-2013-009620

PATIENT
  Sex: 0

DRUGS (2)
  1. ALEVE CAPLET/TABLET,MIDOL EXTENDED RELIEF CAPLET [Suspect]
  2. MOTRIN [Suspect]

REACTIONS (5)
  - Malaise [None]
  - Gastric mucosal lesion [None]
  - Bronchitis [None]
  - Abdominal pain upper [None]
  - Oropharyngeal pain [None]
